FAERS Safety Report 11173241 (Version 1)
Quarter: 2015Q2

REPORT INFORMATION
  Report Type: Spontaneous
  Country: US (occurrence: US)
  Receive Date: 20150608
  Receipt Date: 20150608
  Transmission Date: 20150821
  Serious: Yes (Other)
  Sender: FDA-Public Use
  Company Number: US-RB-077842-15

PATIENT
  Age: 24 Month
  Sex: Male

DRUGS (1)
  1. MUCINEX MAXIMUM STRENGTH [Suspect]
     Active Substance: GUAIFENESIN
     Indication: PRODUCT USED FOR UNKNOWN INDICATION
     Dosage: PATIENT TOOK UP TO 1/2 CAP OF PRODUCT
     Route: 048
     Dates: start: 20150525

REACTIONS (2)
  - Epistaxis [Not Recovered/Not Resolved]
  - Accidental exposure to product by child [Not Recovered/Not Resolved]

NARRATIVE: CASE EVENT DATE: 20150525
